FAERS Safety Report 5407820-5 (Version None)
Quarter: 2007Q3

REPORT INFORMATION
  Report Type: 
  Country: None (occurrence: None)
  Receive Date: 20070803
  Receipt Date: 20070725
  Transmission Date: 20080115
  Serious: Yes (Hospitalization)
  Sender: FDA-Public Use
  Company Number: 220128K07USA

PATIENT
  Age: 7 Year
  Sex: Female

DRUGS (1)
  1. SAIZEN [ (SOMATROPIN (RDNR ORIGIN ) FOR INJECTION) ] (SOMATROPIN) [Suspect]
     Indication: GROWTH HORMONE DEFICIENCY
     Dosage: 0.2 ML

REACTIONS (6)
  - ECONOMIC PROBLEM [None]
  - INFECTION [None]
  - INJECTION SITE BRUISING [None]
  - INJECTION SITE HAEMORRHAGE [None]
  - INJECTION SITE REACTION [None]
  - TREATMENT NONCOMPLIANCE [None]
